FAERS Safety Report 25238072 (Version 1)
Quarter: 2025Q2

REPORT INFORMATION
  Report Type: Spontaneous
  Country: TR (occurrence: TR)
  Receive Date: 20250425
  Receipt Date: 20250425
  Transmission Date: 20250716
  Serious: Yes (Other)
  Sender: AMGEN
  Company Number: TR-AMGEN-TURSP2025078477

PATIENT

DRUGS (1)
  1. ADALIMUMAB [Suspect]
     Active Substance: ADALIMUMAB
     Indication: Psoriatic arthropathy
     Route: 065

REACTIONS (13)
  - Hypersensitivity pneumonitis [Unknown]
  - Mesothelioma [Unknown]
  - Idiopathic interstitial pneumonia [Unknown]
  - Bronchiectasis [Unknown]
  - Organising pneumonia [Unknown]
  - Pulmonary arterial hypertension [Unknown]
  - COVID-19 pneumonia [Unknown]
  - Interstitial lung disease [Unknown]
  - Pulmonary mass [Unknown]
  - Emphysema [Unknown]
  - Pleural thickening [Unknown]
  - Bronchitis [Unknown]
  - Pulmonary septal thickening [Unknown]
